FAERS Safety Report 6214118-4 (Version None)
Quarter: 2009Q2

REPORT INFORMATION
  Report Type: 
  Country: None (occurrence: None)
  Receive Date: 20090604
  Receipt Date: 20090527
  Transmission Date: 20091009
  Serious: Yes (Other)
  Sender: FDA-Public Use
  Company Number: US-ROCHE-634918

PATIENT
  Sex: Male

DRUGS (2)
  1. PEG-INTERFERON A-2A (RO 25-8310) [Suspect]
     Indication: HEPATITIS C
     Dosage: FORM: PRE-FILLED SYRINGE (PFS), PATIENT IN WEEK 18
     Route: 065
     Dates: start: 20090125
  2. RIBAVIRIN [Suspect]
     Indication: HEPATITIS C
     Dosage: PATIENT IN WEEK 18
     Route: 065
     Dates: start: 20090125

REACTIONS (6)
  - ANAEMIA [None]
  - DIZZINESS [None]
  - DYSPNOEA [None]
  - FATIGUE [None]
  - HEPATIC CIRRHOSIS [None]
  - WHITE BLOOD CELL COUNT DECREASED [None]
